FAERS Safety Report 5586559-X (Version None)
Quarter: 2008Q1

REPORT INFORMATION
  Report Type: 
  Country: None (occurrence: None)
  Receive Date: 20080110
  Receipt Date: 20071106
  Transmission Date: 20080703
  Serious: Yes (Hospitalization)
  Sender: FDA-Public Use
  Company Number: US-BAYER-US-2007-001968

PATIENT
  Age: 34 Year
  Sex: Female
  Weight: 127 kg

DRUGS (4)
  1. YAZ [Suspect]
     Indication: ORAL CONTRACEPTION
     Route: 048
     Dates: start: 20061001, end: 20070101
  2. NEXIUM [Concomitant]
  3. PROZAC [Concomitant]
  4. XANAX [Concomitant]

REACTIONS (3)
  - ANTIPHOSPHOLIPID ANTIBODIES POSITIVE [None]
  - DECREASED APPETITE [None]
  - PULMONARY EMBOLISM [None]
